FAERS Safety Report 21793812 (Version 1)
Quarter: 2022Q4

REPORT INFORMATION
  Report Type: Spontaneous
  Country: US (occurrence: None)
  Receive Date: 20221228
  Receipt Date: 20221228
  Transmission Date: 20230112
  Serious: No
  Sender: FDA-Public Use
  Company Number: None

PATIENT
  Age: 69 Year
  Sex: Female
  Weight: 99.8 kg

DRUGS (9)
  1. EVUSHELD [Suspect]
     Active Substance: CILGAVIMAB\TIXAGEVIMAB
     Indication: COVID-19
     Dosage: OTHER FREQUENCY : ONCE;?
     Route: 030
     Dates: start: 20221031, end: 20221031
  2. ZOLEDRONIC ACID [Concomitant]
     Active Substance: ZOLEDRONIC ACID
     Dates: start: 20221121
  3. VEDOLIZUMAB [Concomitant]
     Active Substance: VEDOLIZUMAB
     Dates: start: 20210527
  4. CALCIUM-VITAMIN D PO [Concomitant]
  5. Cholecalciferol (VITAMIN D3 OR) [Concomitant]
  6. CLONAZEPAM [Concomitant]
     Active Substance: CLONAZEPAM
  7. LOSARTAN [Concomitant]
     Active Substance: LOSARTAN
  8. METRONIDAZOLE [Concomitant]
     Active Substance: METRONIDAZOLE
  9. MIRTAZAPINE [Concomitant]
     Active Substance: MIRTAZAPINE

REACTIONS (2)
  - Arthralgia [None]
  - Asthenia [None]

NARRATIVE: CASE EVENT DATE: 20220101
